FAERS Safety Report 22342593 (Version 13)
Quarter: 2024Q2

REPORT INFORMATION
  Report Type: Report from Study
  Country: JP (occurrence: JP)
  Receive Date: 20230519
  Receipt Date: 20240401
  Transmission Date: 20240715
  Serious: Yes (Death, Life-Threatening, Hospitalization, Other)
  Sender: FDA-Public Use
  Company Number: JP-ONO-2023JP012396

PATIENT
  Age: 80 Year
  Sex: Female
  Weight: 61.1 kg

DRUGS (6)
  1. OPDIVO [Suspect]
     Active Substance: NIVOLUMAB
     Indication: Transitional cell carcinoma
     Dosage: (ONLY 1 ADMINISTRATION)
     Route: 041
     Dates: start: 20230406, end: 20230406
  2. OPDIVO [Suspect]
     Active Substance: NIVOLUMAB
  3. SOLU-MEDROL [Suspect]
     Active Substance: METHYLPREDNISOLONE SODIUM SUCCINATE
     Indication: Immune-mediated myocarditis
     Dates: start: 20230425
  4. LEVOTHYROXINE SODIUM [Concomitant]
     Active Substance: LEVOTHYROXINE SODIUM
     Indication: Product used for unknown indication
  5. NEXIUM [Concomitant]
     Active Substance: ESOMEPRAZOLE MAGNESIUM
     Indication: Product used for unknown indication
  6. ALFAROL [Concomitant]
     Active Substance: ALFACALCIDOL
     Indication: Product used for unknown indication

REACTIONS (9)
  - Renal failure [Fatal]
  - Immune-mediated myocarditis [Fatal]
  - Immune-mediated myasthenia gravis [Fatal]
  - Pneumonia aspiration [Recovered/Resolved]
  - Cytomegalovirus test positive [Recovered/Resolved]
  - Restlessness [Recovered/Resolved]
  - Hyperglycaemia [Not Recovered/Not Resolved]
  - Insomnia [Not Recovered/Not Resolved]
  - Immune-mediated myositis [Unknown]

NARRATIVE: CASE EVENT DATE: 20230417
